FAERS Safety Report 25176206 (Version 1)
Quarter: 2025Q2

REPORT INFORMATION
  Report Type: Spontaneous
  Country: US (occurrence: US)
  Receive Date: 20250409
  Receipt Date: 20250409
  Transmission Date: 20250717
  Serious: Yes (Congenital Anomaly, Other)
  Sender: SPECGX
  Company Number: US-SPECGX-T202500724

PATIENT
  Age: 2 Day
  Sex: Female

DRUGS (3)
  1. DEXTROAMPHETAMINE SACCHARATE, AMPHETAMINE ASPARTATE, DEXTROAMPHETAMINE [Suspect]
     Active Substance: AMPHETAMINE ASPARTATE\AMPHETAMINE SULFATE\DEXTROAMPHETAMINE SACCHARATE\DEXTROAMPHETAMINE SULFATE
     Indication: Product used for unknown indication
     Route: 064
  2. FENTANYL [Suspect]
     Active Substance: FENTANYL
     Indication: Product used for unknown indication
     Route: 064
  3. .DELTA.8-TETRAHYDROCANNABINOL\HERBALS [Suspect]
     Active Substance: .DELTA.8-TETRAHYDROCANNABINOL\HERBALS
     Indication: Product used for unknown indication
     Route: 064

REACTIONS (10)
  - Congenital megacolon [Unknown]
  - Intestinal atresia [Unknown]
  - Intestinal ischaemia [Unknown]
  - Ileocaecal resection [Unknown]
  - Abdominal exploration [Unknown]
  - Ileostomy [Unknown]
  - Enterostomy [Unknown]
  - Stoma closure [Unknown]
  - Gastrostomy [Unknown]
  - Foetal exposure during pregnancy [Unknown]
